FAERS Safety Report 7450803-4 (Version None)
Quarter: 2011Q2

REPORT INFORMATION
  Report Type: 
  Country: None (occurrence: None)
  Receive Date: 20110502
  Receipt Date: 20110426
  Transmission Date: 20111010
  Serious: Yes (Other)
  Sender: FDA-Public Use
  Company Number: US-PFIZER INC-2011089812

PATIENT
  Sex: Female

DRUGS (5)
  1. VENLAFAXINE HCL [Suspect]
     Dosage: UNK
  2. DITROPAN [Suspect]
     Dosage: UNK
  3. SEROQUEL [Suspect]
     Dosage: UNK
  4. EFFEXOR XR [Suspect]
     Dosage: UNK
  5. OXYBUTYNIN CHLORIDE [Suspect]
     Dosage: UNK

REACTIONS (5)
  - UNEVALUABLE EVENT [None]
  - HYPERHIDROSIS [None]
  - BLADDER OPERATION [None]
  - GASTROOESOPHAGEAL REFLUX DISEASE [None]
  - POLLAKIURIA [None]
